FAERS Safety Report 14081343 (Version 1)
Quarter: 2017Q4

REPORT INFORMATION
  Report Type: Report from Study
  Country: US (occurrence: US)
  Receive Date: 20171012
  Receipt Date: 20171012
  Transmission Date: 20180321
  Serious: Yes (Death, Hospitalization)
  Sender: FDA-Public Use
  Company Number: US-ACTELION-A-US2017-160741

PATIENT
  Age: 60 Year
  Sex: Female

DRUGS (13)
  1. TRAZODONE [Concomitant]
     Active Substance: TRAZODONE HYDROCHLORIDE
     Dosage: 50 MG, QHS
  2. PREDNISONE. [Concomitant]
     Active Substance: PREDNISONE
     Dosage: 5 MG, QAM
  3. DILTIAZEM. [Concomitant]
     Active Substance: DILTIAZEM
     Dosage: 30 MG, QID
  4. FUROSEMIDE. [Concomitant]
     Active Substance: FUROSEMIDE
     Dosage: 40 MG, BID
  5. SPIRONOLACTONE. [Concomitant]
     Active Substance: SPIRONOLACTONE
     Dosage: 25 MG, QD
  6. CITALOPRAM [Concomitant]
     Active Substance: CITALOPRAM HYDROBROMIDE
     Dosage: 30 MG, QD
  7. SILDENAFIL. [Concomitant]
     Active Substance: SILDENAFIL
     Dosage: 10 MG, TID
  8. OMEPRAZOLE. [Concomitant]
     Active Substance: OMEPRAZOLE
     Dosage: 20 MG, QD
  9. ASPIRIN. [Concomitant]
     Active Substance: ASPIRIN
     Dosage: 81 MG, QD
  10. TYVASO [Concomitant]
     Active Substance: TREPROSTINIL
     Dosage: 9 BREATHS, QID
  11. TRACLEER [Suspect]
     Active Substance: BOSENTAN
     Indication: PULMONARY HYPERTENSION
     Dosage: 125 MG, BID
     Route: 048
     Dates: start: 201506, end: 201709
  12. ONDANSETRON [Concomitant]
     Active Substance: ONDANSETRON
     Dosage: 4 MG, Q 12- 12H , PRN
  13. FERROUS GLUCONATE [Concomitant]
     Active Substance: FERROUS GLUCONATE
     Dosage: 324 MG, QD

REACTIONS (7)
  - Sputum purulent [Unknown]
  - Septic shock [Fatal]
  - Pyrexia [Unknown]
  - Chills [Unknown]
  - Obstructive shock [Fatal]
  - Pneumonia [Unknown]
  - Anuria [Unknown]
